FAERS Safety Report 23543557 (Version 2)
Quarter: 2024Q3

REPORT INFORMATION
  Report Type: Spontaneous
  Country: US (occurrence: US)
  Receive Date: 20240220
  Receipt Date: 20240708
  Transmission Date: 20241017
  Serious: Yes (Other)
  Sender: PROCTER AND GAMBLE
  Company Number: US-PROCTER_AND_GAMBLE-GS24016654

PATIENT
  Age: 57 Year
  Sex: Female
  Weight: 86.168 kg

DRUGS (2)
  1. SECRET POWDER FRESH ANTIPERSPIRANT AND DEODORANT WIDE [Suspect]
     Active Substance: ALUMINUM ZIRCONIUM PENTACHLOROHYDREX GLY
     Dosage: UNK
     Dates: start: 202307, end: 202307
  2. HYDROCHLOROTHIAZIDE\LOSARTAN POTASSIUM [Concomitant]
     Active Substance: HYDROCHLOROTHIAZIDE\LOSARTAN POTASSIUM

REACTIONS (3)
  - Tooth fracture [Recovering/Resolving]
  - Product package associated injury [Unknown]
  - Product packaging issue [Unknown]

NARRATIVE: CASE EVENT DATE: 20230701
